FAERS Safety Report 5282257-0 (Version None)
Quarter: 2007Q1

REPORT INFORMATION
  Report Type: 
  Country: None (occurrence: None)
  Receive Date: 20070330
  Receipt Date: 20070320
  Transmission Date: 20070707
  Serious: Yes (Other)
  Sender: FDA-Public Use
  Company Number: BR-PFIZER INC-2007022917

PATIENT
  Sex: Female

DRUGS (3)
  1. FRONTAL [Suspect]
     Indication: ANXIETY
     Route: 048
  2. FRONTAL [Suspect]
     Indication: PANIC DISORDER
  3. PROPRANOLOL [Concomitant]
     Route: 065

REACTIONS (3)
  - BREAST CYST [None]
  - CHROMOSOME ABNORMALITY [None]
  - PAIN [None]
